FAERS Safety Report 5829500-4 (Version None)
Quarter: 2008Q3

REPORT INFORMATION
  Report Type: 
  Country: None (occurrence: None)
  Receive Date: 20080729
  Receipt Date: 20080716
  Transmission Date: 20090109
  Serious: Yes (Hospitalization)
  Sender: FDA-Public Use
  Company Number: POMP-1000221

PATIENT
  Age: 6 Week
  Sex: Female
  Weight: 3.6 kg

DRUGS (1)
  1. MYOZYME [Suspect]
     Indication: GLYCOGEN STORAGE DISEASE TYPE II
     Dosage: 20 MG/KG, Q2W, INTRAVENOUS
     Route: 042
     Dates: start: 20080519

REACTIONS (5)
  - BLOOD IMMUNOGLOBULIN G INCREASED [None]
  - CATHETER PLACEMENT [None]
  - DIARRHOEA [None]
  - OXYGEN SATURATION DECREASED [None]
  - VOMITING [None]
